FAERS Safety Report 22250961 (Version 1)
Quarter: 2023Q2

REPORT INFORMATION
  Report Type: Spontaneous
  Country: GB (occurrence: GB)
  Receive Date: 20230425
  Receipt Date: 20230425
  Transmission Date: 20230721
  Serious: Yes (Death, Life-Threatening, Hospitalization, Other)
  Sender: FDA-Public Use
  Company Number: GB-MLMSERVICE-20230414-4228966-1

PATIENT
  Age: 2 Month
  Sex: Male
  Weight: 2.9 kg

DRUGS (6)
  1. MORPHINE SULFATE [Suspect]
     Active Substance: MORPHINE SULFATE
     Indication: Analgesic therapy
     Dosage: 0.1 MILLIGRAM/KILOGRAM, 1 TOTAL
     Route: 042
  2. FENTANYL [Suspect]
     Active Substance: FENTANYL
     Indication: General anaesthesia
     Dosage: 1 MCG/KG, MICROGRAM PER KILOGRAM
     Route: 042
  3. PROPOFOL [Suspect]
     Active Substance: PROPOFOL
     Indication: General anaesthesia
     Dosage: 3 MILLIGRAM/KILOGRAM
     Route: 042
  4. SEVOFLURANE [Suspect]
     Active Substance: SEVOFLURANE
     Indication: Maintenance of anaesthesia
     Dosage: 2%, 1 TOTAL
     Route: 065
  5. BUPIVACAINE [Concomitant]
     Active Substance: BUPIVACAINE
     Indication: Product used for unknown indication
     Dosage: 2 MILLILITER, 1 TOTAL
     Route: 065
  6. OXYGEN [Concomitant]
     Active Substance: OXYGEN
     Indication: Oxygen therapy
     Dosage: 50%, 1 TOTAL
     Route: 065

REACTIONS (4)
  - Bradycardia [Fatal]
  - Cardiac arrest [Fatal]
  - Hypoxia [Fatal]
  - Apnoea [Fatal]
